FAERS Safety Report 16531896 (Version 3)
Quarter: 2019Q4

REPORT INFORMATION
  Report Type: Spontaneous
  Country: CA (occurrence: US)
  Receive Date: 20190705
  Receipt Date: 20191211
  Transmission Date: 20200122
  Serious: Yes (Hospitalization, Other)
  Sender: FDA-Public Use
  Company Number: US-APOTEX-2019AP017478

PATIENT
  Age: 53 Year
  Sex: Female
  Weight: 101.59 kg

DRUGS (1)
  1. FLUTICASONE PROPIONATE NASAL SPRAY USP [Suspect]
     Active Substance: FLUTICASONE PROPIONATE
     Indication: HYPERSENSITIVITY
     Dosage: 50 MCG / INH
     Route: 065
     Dates: start: 20180503

REACTIONS (9)
  - Product contamination physical [Unknown]
  - Nasal discomfort [Unknown]
  - Cerebrospinal fluid leakage [Recovered/Resolved]
  - Nasal congestion [Unknown]
  - Rhinorrhoea [Unknown]
  - Emotional distress [Unknown]
  - Hypersensitivity [Unknown]
  - Recalled product administered [Unknown]
  - Parosmia [Unknown]

NARRATIVE: CASE EVENT DATE: 201806
